FAERS Safety Report 8362541 (Version 4)
Quarter: 2012Q4

REPORT INFORMATION
  Report Type: 
  Country: US (occurrence: US)
  Receive Date: 20120130
  Receipt Date: 20121031
  Transmission Date: 20130627
  Serious: Yes (Death)
  Sender: FDA-Public Use
  Company Number: CHPA2012US002112

PATIENT
  Age: 66 Year
  Sex: Female

DRUGS (4)
  1. EXCEDRIN EXTRA STRENGTH [Suspect]
     Dosage: UNK, UNK
     Route: 048
  2. EXCEDRIN EXTRA STRENGTH [Suspect]
     Dosage: UNK, UNK
  3. EXCEDRIN TENSION HEADACHE [Suspect]
     Dosage: UNK, UNK
     Route: 048
  4. EXCEDRIN TENSION HEADACHE [Suspect]
     Dosage: UNK, UNK

REACTIONS (1)
  - Myocardial infarction [Fatal]
